FAERS Safety Report 16213316 (Version 4)
Quarter: 2019Q3

REPORT INFORMATION
  Report Type: Report from Study
  Country: US (occurrence: US)
  Receive Date: 20190418
  Receipt Date: 20190906
  Transmission Date: 20191004
  Serious: No
  Sender: FDA-Public Use
  Company Number: PHEH2019US016272

PATIENT
  Sex: Female

DRUGS (1)
  1. ENTRESTO [Suspect]
     Active Substance: SACUBITRIL\VALSARTAN
     Indication: PRODUCT USED FOR UNKNOWN INDICATION
     Dosage: 1DF (49 MG SACUBITRIL, 51 MG VALSARTAN), BID
     Route: 048

REACTIONS (16)
  - Hypotension [Recovering/Resolving]
  - Drug interaction [Unknown]
  - Arthritis [Not Recovered/Not Resolved]
  - Inflammation [Unknown]
  - Gait disturbance [Unknown]
  - Sciatica [Unknown]
  - Arthropathy [Unknown]
  - Hypersensitivity [Recovering/Resolving]
  - Pain [Unknown]
  - Nausea [Unknown]
  - Drug ineffective [Unknown]
  - Dizziness [Unknown]
  - Arthralgia [Unknown]
  - Asthenia [Unknown]
  - Cough [Unknown]
  - Amnesia [Unknown]
